FAERS Safety Report 12940706 (Version 2)
Quarter: 2016Q4

REPORT INFORMATION
  Report Type: Spontaneous
  Country: JP (occurrence: JP)
  Receive Date: 20161115
  Receipt Date: 20161121
  Transmission Date: 20170207
  Serious: Yes (Other)
  Sender: FDA-Public Use
  Company Number: PHJP2016JP032448

PATIENT
  Age: 82 Year
  Sex: Female

DRUGS (1)
  1. CARBAMAZEPINE. [Suspect]
     Active Substance: CARBAMAZEPINE
     Indication: TRIGEMINAL NEURALGIA
     Dosage: UNK
     Route: 048

REACTIONS (12)
  - Coombs direct test positive [Unknown]
  - Blood bilirubin increased [Unknown]
  - Antibody test abnormal [Unknown]
  - Cold agglutinins [Unknown]
  - Warm type haemolytic anaemia [Unknown]
  - Mean cell volume increased [Unknown]
  - Coombs indirect test positive [Unknown]
  - Haptoglobin decreased [Unknown]
  - Refractory anaemia with ringed sideroblasts [Unknown]
  - Reticulocyte count increased [Unknown]
  - Haemolytic anaemia [Unknown]
  - Blood lactate dehydrogenase increased [Unknown]
